FAERS Safety Report 8902197 (Version 3)
Quarter: 2013Q1

REPORT INFORMATION
  Report Type: Spontaneous
  Country: JP (occurrence: JP)
  Receive Date: 20121112
  Receipt Date: 20130301
  Transmission Date: 20140127
  Serious: Yes (Other)
  Sender: FDA-Public Use
  Company Number: JP-JNJFOC-20121104423

PATIENT
  Sex: 0

DRUGS (2)
  1. ITRIZOLE [Suspect]
     Indication: ASPERGILLUS INFECTION
     Route: 048
  2. FUNGIZONE [Concomitant]
     Indication: CANDIDA INFECTION
     Route: 065

REACTIONS (1)
  - Oral candidiasis [Unknown]
